FAERS Safety Report 18541952 (Version 1)
Quarter: 2020Q4

REPORT INFORMATION
  Report Type: Spontaneous
  Country: US (occurrence: US)
  Receive Date: 20201125
  Receipt Date: 20201125
  Transmission Date: 20210114
  Serious: No
  Sender: FDA-Public Use
  Company Number: US-ACCORD-199507

PATIENT
  Sex: Male

DRUGS (1)
  1. BUPROPION/BUPROPION HYDROCHLORIDE [Suspect]
     Active Substance: BUPROPION HYDROCHLORIDE
     Indication: DEPRESSION
     Dosage: ONCE A DAY
     Route: 048
     Dates: start: 20200812, end: 2020

REACTIONS (3)
  - Nausea [Unknown]
  - Product odour abnormal [Unknown]
  - Dysphagia [Unknown]
